FAERS Safety Report 8967938 (Version 1)
Quarter: 2012Q4

REPORT INFORMATION
  Report Type: Report from Study
  Country: DE (occurrence: DE)
  Receive Date: 20121217
  Receipt Date: 20121217
  Transmission Date: 20130627
  Serious: Yes (Hospitalization, Other)
  Sender: FDA-Public Use
  Company Number: DE-BAXTER-2012BAX026471

PATIENT
  Age: 24 Year
  Sex: Male
  Weight: 75 kg

DRUGS (3)
  1. ENDOXAN [Suspect]
     Indication: IMMUNOSUPPRESSION
     Dates: start: 20090512, end: 20090512
  2. ENDOXAN [Suspect]
     Dates: start: 20090526, end: 20090526
  3. UROMITEXAN [Suspect]
     Indication: DRUG USE FOR UNKNOWN INDICATION
     Route: 065

REACTIONS (2)
  - Pyrexia [Recovered/Resolved]
  - Tubulointerstitial nephritis [Not Recovered/Not Resolved]
